FAERS Safety Report 8993520 (Version 2)
Quarter: 2013Q1

REPORT INFORMATION
  Report Type: Spontaneous
  Country: FR (occurrence: FR)
  Receive Date: 20130102
  Receipt Date: 20130104
  Transmission Date: 20140127
  Serious: Yes (Hospitalization)
  Sender: FDA-Public Use
  Company Number: FR-BRISTOL-MYERS SQUIBB COMPANY-17244146

PATIENT
  Age: 9 Year
  Sex: Female

DRUGS (9)
  1. PERFALGAN [Suspect]
     Indication: PYREXIA
     Route: 042
     Dates: start: 20120924, end: 20120925
  2. BRISTOPEN [Suspect]
     Indication: ABSCESS
     Dates: start: 20121005, end: 20121011
  3. AMIKACIN SULFATE [Suspect]
     Indication: ABSCESS
     Dates: start: 20121002, end: 20121004
  4. CODENFAN [Suspect]
     Indication: PAIN
     Dosage: 1DF:1MG/ML?SYRUP
     Dates: start: 20120924, end: 20120925
  5. COLCHICINE [Suspect]
     Indication: PERICARDITIS
     Route: 048
     Dates: start: 20121002, end: 20121024
  6. DALACINE [Suspect]
     Indication: ABSCESS
     Dates: start: 20121002, end: 20121024
  7. AUGMENTIN [Suspect]
     Indication: ABSCESS
     Dates: start: 20121002, end: 20121005
  8. ORBENINE [Suspect]
     Indication: ABSCESS
     Dates: start: 20121011, end: 20121024
  9. RIFADINE [Suspect]
     Indication: ABSCESS
     Dates: start: 20121025, end: 20121029

REACTIONS (1)
  - Drug reaction with eosinophilia and systemic symptoms [Recovered/Resolved]
